FAERS Safety Report 25540776 (Version 4)
Quarter: 2025Q4

REPORT INFORMATION
  Report Type: Spontaneous
  Country: US (occurrence: US)
  Receive Date: 20250710
  Receipt Date: 20251231
  Transmission Date: 20260117
  Serious: Yes (Other)
  Sender: PFIZER
  Company Number: US-PFIZER INC-202500138761

PATIENT
  Age: 49 Year
  Sex: Female
  Weight: 91.565 kg

DRUGS (26)
  1. INLYTA [Suspect]
     Active Substance: AXITINIB
     Indication: Renal cancer
     Dosage: UNK
     Dates: start: 20250313
  2. INLYTA [Suspect]
     Active Substance: AXITINIB
     Dosage: 7 MG, 2X/DAY (TAKE 2 TABLET OF 1 MG WITH 1 TABLET OF 5 MG TWICE A DAY)
     Route: 048
     Dates: start: 20250412
  3. INLYTA [Suspect]
     Active Substance: AXITINIB
     Dosage: 7 MG, 2X/DAY (TAKE 2 TABLET OF 1 MG WITH 1 TABLET OF 5 MG TWICE A DAY)
     Route: 048
     Dates: end: 20250527
  4. PROVENTIL [Concomitant]
     Active Substance: ALBUTEROL
     Dosage: 3 ML, EVERY 4 HRS (INHALE 3 ML SOLUTION BY NEBULIZER AS DIRECTED EVERY 4 HOURS)
     Dates: start: 20250306
  5. MYLANTA [Concomitant]
     Active Substance: ALUMINUM HYDROXIDE\DIMETHICONE\MAGNESIUM HYDROXIDE
     Dosage: 30 ML, AS NEEDED (TAKE 30 ML BY MOUTH EVERY 4 HOURS AS NEEDED.)
     Route: 048
  6. LIPITOR [Concomitant]
     Active Substance: ATORVASTATIN CALCIUM
     Dosage: 20 MG, 1X/DAY
     Route: 048
     Dates: start: 20250303
  7. CABOMETYX [Concomitant]
     Active Substance: CABOZANTINIB S-MALATE
     Dosage: 40 MG, 1X/DAY (TAKE ON AN EMPTY STOMACH, AT LEAST 1 HOUR BEFORE OR 2 HOURS AFTER FOOD.)
     Route: 048
     Dates: start: 20251010, end: 20251024
  8. LOVENOX [Concomitant]
     Active Substance: ENOXAPARIN SODIUM
     Dosage: 150 MG/ML, 1X/DAY (150 MG/ML, 1X/DAY (INJECT 1 SYRINGE UNDER THE SKIN 1 TIME A DAY))
     Route: 058
     Dates: start: 20250122
  9. PEPCID [Concomitant]
     Active Substance: FAMOTIDINE
     Dosage: 20 MG, 1X/DAY (TAKE ONE TABLET BY MOUTH AT BEDTIME DAILY)
     Route: 048
     Dates: start: 20250731
  10. TRELEGY ELLIPTA [Concomitant]
     Active Substance: FLUTICASONE FUROATE\UMECLIDINIUM BROMIDE\VILANTEROL TRIFENATATE
     Dosage: 1 DF, DAILY (INHALE ONE PUFF BY MOUTH INTO THE LUNGS DAILY.)
     Route: 048
     Dates: start: 20240528
  11. SYNTHROID [Concomitant]
     Active Substance: LEVOTHYROXINE SODIUM
     Dosage: 125 UG, 1X/DAY (30 MINUTES BEFORE BREAKFAST)
     Route: 048
     Dates: start: 20250915
  12. LIDOCAINE VISCOUS [Concomitant]
     Active Substance: LIDOCAINE HYDROCHLORIDE
     Indication: Stomatitis
     Dosage: 5 ML, AS NEEDED (SWISH AND SWALLOW 5 ML BY MOUTH AS DIRECTED FOUR TIMES DAILY AS NEEDED)
     Route: 048
     Dates: start: 20251024
  13. IMODIUM A-D [Concomitant]
     Active Substance: LOPERAMIDE HYDROCHLORIDE
     Indication: Diarrhoea
     Dosage: 2 MG, AS NEEDED (TAKE 1 PILL (2 MG) ORALLY EVERY 2 HOURS AS NEEDED)
     Route: 048
     Dates: start: 20250915
  14. ATIVAN [Concomitant]
     Active Substance: LORAZEPAM
     Indication: Insomnia
     Dosage: 0.5 MG, AS NEEDED (EVERY 6 HOURS AS NEEDED FOR NAUSEA, VOMITING OR OTHER)
     Route: 048
     Dates: start: 20251101
  15. ATIVAN [Concomitant]
     Active Substance: LORAZEPAM
     Indication: Nausea
  16. ATIVAN [Concomitant]
     Active Substance: LORAZEPAM
     Indication: Vomiting
  17. NYSTOP [Concomitant]
     Active Substance: NYSTATIN
     Indication: Fungal skin infection
     Dosage: 100000 IU/G, 2X/DAY (TOPICAL POWDER, APPLY TOPICALLY TO AFFECTED AREA TWICE DAILY)
     Route: 061
     Dates: start: 20251024
  18. PRILOSEC [Concomitant]
     Active Substance: OMEPRAZOLE MAGNESIUM
     Indication: Erosive oesophagitis
     Dosage: 40 MG, 2X/DAY (TAKE ONE CAPSULE BY MOUTH TWICE DAILY)
     Route: 048
     Dates: start: 20251024
  19. ZOFRAN [Concomitant]
     Active Substance: ONDANSETRON HYDROCHLORIDE
     Indication: Nausea
     Dosage: 4 MG, AS NEEDED (DISSOLVE TWO TABLETS BY MOUTH EVERY 8 HOURS AS NEEDED)
     Route: 048
     Dates: start: 20251024
  20. ZOFRAN [Concomitant]
     Active Substance: ONDANSETRON HYDROCHLORIDE
     Indication: Vomiting
  21. ZOFRAN [Concomitant]
     Active Substance: ONDANSETRON HYDROCHLORIDE
     Dosage: 8 MG
     Dates: start: 20251022
  22. ROXICODONE [Concomitant]
     Active Substance: OXYCODONE HYDROCHLORIDE
     Indication: Pain
     Dosage: 5 MG, AS NEEDED (TAKE ONE TABLET BY MOUTH EVERY 6 HOURS AS NEEDED)
     Route: 048
     Dates: start: 20251024
  23. COMPAZINE [Concomitant]
     Active Substance: PROCHLORPERAZINE MALEATE
     Indication: Nausea
     Dosage: 10 MG, AS NEEDED (EVERY 6 HOURS AS NEEDED FOR NAUSEA OR VOMITING)
     Route: 048
     Dates: start: 20251101
  24. COMPAZINE [Concomitant]
     Active Substance: PROCHLORPERAZINE MALEATE
     Indication: Vomiting
  25. VENTOLIN HFA [Concomitant]
     Active Substance: ALBUTEROL SULFATE
     Indication: Wheezing
     Dosage: 2 DF, AS NEEDED (INHALE TWO PUFFS BY MOUTH INTO THE LUNGS EVERY 6 HOURS AS NEEDED)
     Route: 048
  26. VENTOLIN HFA [Concomitant]
     Active Substance: ALBUTEROL SULFATE
     Indication: Dyspnoea

REACTIONS (2)
  - Renal cancer [Not Recovered/Not Resolved]
  - Malignant neoplasm progression [Not Recovered/Not Resolved]

NARRATIVE: CASE EVENT DATE: 20250527
